FAERS Safety Report 15850421 (Version 1)
Quarter: 2019Q1

REPORT INFORMATION
  Report Type: Spontaneous
  Country: IT (occurrence: IT)
  Receive Date: 20190121
  Receipt Date: 20190121
  Transmission Date: 20190417
  Serious: Yes (Other)
  Sender: FDA-Public Use
  Company Number: PHHY2019IT010798

PATIENT
  Age: 8 Year
  Sex: Male

DRUGS (1)
  1. TOLEP [Suspect]
     Active Substance: OXCARBAZEPINE
     Indication: PARTIAL SEIZURES
     Dosage: 400 MG, QD
     Route: 048
     Dates: start: 20170719

REACTIONS (5)
  - Headache [Recovered/Resolved]
  - Eye movement disorder [Recovered/Resolved]
  - Hypotonia [Recovered/Resolved]
  - Vomiting [Recovered/Resolved]
  - Loss of consciousness [Recovered/Resolved]

NARRATIVE: CASE EVENT DATE: 20181128
